FAERS Safety Report 8769362 (Version 2)
Quarter: 2012Q4

REPORT INFORMATION
  Report Type: 
  Country: US (occurrence: US)
  Receive Date: 20120829
  Receipt Date: 20121105
  Transmission Date: 20130627
  Serious: Yes (Death, Hospitalization)
  Sender: FDA-Public Use
  Company Number: US-ELI_LILLY_AND_COMPANY-US201208008609

PATIENT
  Sex: Female

DRUGS (17)
  1. FORTEO [Suspect]
     Dosage: 20 ug, qd
     Route: 058
     Dates: start: 20110406
  2. ASPIRIN [Concomitant]
     Dosage: 81 mg, qd
     Route: 048
  3. MULTIVITAMIN [Concomitant]
     Dosage: UNK, qd
     Route: 048
  4. OMEPRAZOLE [Concomitant]
     Dosage: 20 mg, qd
     Route: 048
  5. FERROUS SULFATE [Concomitant]
     Dosage: 325 mg, qd
     Route: 048
  6. SODIUM BICARBONATE [Concomitant]
     Dosage: 1300 mg, qd
  7. SYNTHROID [Concomitant]
     Dosage: 75 u, qd
     Route: 048
  8. VITAMIN D [Concomitant]
     Dosage: 400 IU, qd
     Route: 048
  9. ARICEPT [Concomitant]
     Dosage: 10 mg, qd
     Route: 048
  10. TOBRADEX [Concomitant]
  11. COMBIGAN [Concomitant]
     Dosage: 1 Gtt, bid
     Route: 047
  12. ARANESP [Concomitant]
     Dosage: 100 u, monthly (1/M)
  13. IPRATROPIUM BROMIDE [Concomitant]
     Dosage: 15 ml, prn
     Route: 045
  14. ETHEDENT [Concomitant]
     Dosage: 1.1 %, unknown
  15. VITAMIN C [Concomitant]
     Dosage: 250 mg, bid
  16. CYPROHEPTADINE [Concomitant]
     Dosage: 4 mg, bid
  17. OSCAL [Concomitant]
     Dosage: UNK, bid

REACTIONS (11)
  - Acute respiratory failure [Fatal]
  - Septic shock [Fatal]
  - Sepsis [Fatal]
  - Dyspnoea [Not Recovered/Not Resolved]
  - Off label use [Unknown]
  - Lethargy [Unknown]
  - Hypophagia [Unknown]
  - Liver function test abnormal [Unknown]
  - Constipation [Unknown]
  - Nausea [Unknown]
  - Muscle spasms [Unknown]
